FAERS Safety Report 13515547 (Version 1)
Quarter: 2017Q2

REPORT INFORMATION
  Report Type: Report from Study
  Country: US (occurrence: US)
  Receive Date: 20170504
  Receipt Date: 20170504
  Transmission Date: 20170830
  Serious: Yes (Death, Hospitalization)
  Sender: FDA-Public Use
  Company Number: US-ACTELION-A-NJ2017-150984

PATIENT
  Age: 62 Year
  Sex: Female

DRUGS (2)
  1. TARGRETIN [Concomitant]
     Active Substance: BEXAROTENE
  2. VALCHLOR [Suspect]
     Active Substance: MECHLORETHAMINE
     Indication: T-CELL LYMPHOMA
     Dosage: UNK
     Route: 061
     Dates: start: 20161122

REACTIONS (3)
  - Wound drainage [Unknown]
  - Death [Fatal]
  - Skin infection [Unknown]

NARRATIVE: CASE EVENT DATE: 20170425
